FAERS Safety Report 21438671 (Version 4)
Quarter: 2022Q4

REPORT INFORMATION
  Report Type: Spontaneous
  Country: US (occurrence: US)
  Receive Date: 20221011
  Receipt Date: 20221205
  Transmission Date: 20230113
  Serious: No
  Sender: FDA-Public Use
  Company Number: US-LUPIN PHARMACEUTICALS INC.-2022-11744

PATIENT

DRUGS (2)
  1. SERTRALINE HYDROCHLORIDE [Suspect]
     Active Substance: SERTRALINE HYDROCHLORIDE
     Indication: Generalised anxiety disorder
     Dosage: UNK (SINCE 3 YEARS)
     Route: 048
     Dates: start: 202001
  2. SERTRALINE HYDROCHLORIDE [Suspect]
     Active Substance: SERTRALINE HYDROCHLORIDE
     Dosage: UNK (RECENT PRESCRIPTION)
     Route: 048

REACTIONS (4)
  - Nausea [Unknown]
  - Anxiety [Unknown]
  - Drug intolerance [Unknown]
  - Product use complaint [Unknown]
